FAERS Safety Report 21820778 (Version 1)
Quarter: 2023Q1

REPORT INFORMATION
  Report Type: Spontaneous
  Country: US (occurrence: None)
  Receive Date: 20230105
  Receipt Date: 20230105
  Transmission Date: 20230417
  Serious: Yes (Hospitalization, Other)
  Sender: FDA-Public Use
  Company Number: US-ROCHE-3256379

PATIENT
  Age: 52 Year
  Sex: Female

DRUGS (16)
  1. KADCYLA [Suspect]
     Active Substance: ADO-TRASTUZUMAB EMTANSINE
     Indication: HER2 positive breast cancer
     Route: 042
     Dates: start: 201706, end: 20220221
  2. KADCYLA [Suspect]
     Active Substance: ADO-TRASTUZUMAB EMTANSINE
     Route: 042
     Dates: start: 2022
  3. ATEZOLIZUMAB [Suspect]
     Active Substance: ATEZOLIZUMAB
     Indication: HER2 positive breast cancer
     Route: 041
     Dates: start: 201706
  4. ELIQUIS [Concomitant]
     Active Substance: APIXABAN
     Dosage: TAKE 1 TABLET BY MOUTH TWICE A DAY
     Route: 048
  5. VITAMIN B COMPLEX [Concomitant]
     Active Substance: CYANOCOBALAMIN\DEXPANTHENOL\NIACINAMIDE\PYRIDOXINE HYDROCHLORIDE\RIBOFLAVIN 5^-PHOSPHATE SODIUM\THIA
     Dosage: TAKE 1 TABLET BY MOUTH DAILY.
     Route: 048
  6. CELEXA [Concomitant]
     Active Substance: CITALOPRAM HYDROBROMIDE
     Dosage: TAKE BY MOUTH DAILY.
     Route: 048
  7. KLONOPIN [Concomitant]
     Active Substance: CLONAZEPAM
     Dosage: TAKE 2 TABLETS BY MOUTH NIGHTLY FOR SLEEP
     Route: 048
  8. FERROUS SULFATE [Concomitant]
     Active Substance: FERROUS SULFATE
     Dosage: 325 MG (65 MG IRON) TABLET, TAKE 325 MG BY MOUTH EVERY OTHER DAY.
     Route: 048
  9. LASIX [Concomitant]
     Active Substance: FUROSEMIDE
     Dosage: TAKE 1 TABLET (20 MG TOTAL) BY MOUTH DAILY
     Route: 048
  10. HYDROQUINONE [Concomitant]
     Active Substance: HYDROQUINONE
     Dosage: APPLY TOPICALLY NIGHTLY. FOR NO MORE THAN 6 MONTHS
     Route: 061
  11. LMX (UNITED STATES) [Concomitant]
     Dosage: 4 % TOPICAL CREAM, APPLY 1 APPLICATION TOPICALLY AS NEEDED
     Route: 061
  12. MAGNESIUM [Concomitant]
     Active Substance: MAGNESIUM
     Dosage: TAKE 1 TABLET BY MOUTH 2 (TWO) TIMES DAILY
     Route: 048
  13. TOPROL XL [Concomitant]
     Active Substance: METOPROLOL SUCCINATE
     Dosage: 25 MG 24 HR TABLET, TAKE 0.5 TABLETS (12.5 MG PER DOSE} BY MOUTH DAILY
     Route: 048
  14. COMPAZINE [Concomitant]
     Active Substance: PROCHLORPERAZINE MALEATE
     Dosage: 10 MG TABLET, TAKE 1 TABLET (10 MG TOTAL) BY MOUTH EVERY 6 (SIX) HOURS AS NEEDED (FOR NAUSEA +/OR?VO
     Route: 048
  15. OCEAN SALINE NASAL SPRAY [Concomitant]
     Active Substance: SODIUM CHLORIDE
     Dosage: 0.65 % NASAL SPRAY, BY EACH NARE ROUTE
  16. RETIN-A [Concomitant]
     Active Substance: TRETINOIN
     Dosage: 0.05 % TOPICAL CREAM, APPLY TOPICALLY NIGHTLY

REACTIONS (8)
  - Fat necrosis [Unknown]
  - Bacteraemia [Unknown]
  - Thrombocytopenia [Unknown]
  - Aortic valve incompetence [Unknown]
  - Hepatic cirrhosis [Unknown]
  - Device related thrombosis [Unknown]
  - Inflammation [Unknown]
  - Adenoma benign [Unknown]

NARRATIVE: CASE EVENT DATE: 20220401
